FAERS Safety Report 5859785-X (Version None)
Quarter: 2008Q3

REPORT INFORMATION
  Report Type: 
  Country: None (occurrence: None)
  Receive Date: 20080827
  Receipt Date: 20080821
  Transmission Date: 20090109
  Serious: Yes (Disabling)
  Sender: FDA-Public Use
  Company Number: GB-MERCK-0805GBR00101

PATIENT
  Age: 83 Year
  Sex: Female

DRUGS (5)
  1. TIMOPTIC [Suspect]
     Indication: ULCERATIVE KERATITIS
     Route: 047
     Dates: start: 20041201
  2. PREDNISOLONE [Suspect]
     Route: 047
  3. OFLOXACIN [Suspect]
     Route: 047
  4. CEFUROXIME [Concomitant]
     Route: 047
  5. PREDNISOLONE [Concomitant]
     Route: 048

REACTIONS (1)
  - CORNEAL EPITHELIUM DEFECT [None]
